FAERS Safety Report 18077379 (Version 1)
Quarter: 2020Q3

REPORT INFORMATION
  Report Type: Report from Study
  Country: CR (occurrence: CR)
  Receive Date: 20200727
  Receipt Date: 20200727
  Transmission Date: 20201103
  Serious: Yes (Other)
  Sender: FDA-Public Use
  Company Number: NVSC2020CR109022

PATIENT
  Sex: Female

DRUGS (1)
  1. SCAPHO [Suspect]
     Active Substance: SECUKINUMAB
     Indication: PSORIASIS
     Dosage: 300 MG, QMO
     Route: 058
     Dates: start: 20200224

REACTIONS (5)
  - Fear [Recovering/Resolving]
  - Choking [Recovering/Resolving]
  - Nervousness [Recovered/Resolved]
  - Conversion disorder [Recovering/Resolving]
  - Pigmentation disorder [Recovering/Resolving]
